FAERS Safety Report 6697186-5 (Version None)
Quarter: 2010Q2

REPORT INFORMATION
  Report Type: 
  Country: None (occurrence: None)
  Receive Date: 20100422
  Receipt Date: 20100409
  Transmission Date: 20101027
  Serious: Yes (Other)
  Sender: FDA-Public Use
  Company Number: JPI-P-010293

PATIENT
  Age: 54 Year
  Sex: Female
  Weight: 84.369 kg

DRUGS (3)
  1. XYREM [Suspect]
     Indication: NARCOLEPSY
     Dosage: 4.5 GM (2.25 GM, 2 IN 1 D), ORAL, 7 GM (3.5 GM, 2  IN 1 D), ORAL
     Route: 048
     Dates: start: 20080928
  2. OMEPRAZOLE [Concomitant]
  3. LORATADINE [Concomitant]

REACTIONS (2)
  - INTERVERTEBRAL DISC PROTRUSION [None]
  - PARAESTHESIA [None]
